FAERS Safety Report 20693958 (Version 2)
Quarter: 2024Q4

REPORT INFORMATION
  Report Type: Spontaneous
  Country: HU (occurrence: HU)
  Receive Date: 20220411
  Receipt Date: 20241114
  Transmission Date: 20250114
  Serious: Yes (Other)
  Sender: NOVO NORDISK
  Company Number: None

PATIENT
  Age: 27 Year
  Sex: Female
  Weight: 93 kg

DRUGS (6)
  1. NOVORAPID [Suspect]
     Active Substance: INSULIN ASPART
     Indication: Type 2 diabetes mellitus
     Dosage: 45 IU, QD (15-15-15E)
  2. NOVORAPID [Suspect]
     Active Substance: INSULIN ASPART
     Dosage: 18 IU, QD
  3. LANTUS [Suspect]
     Active Substance: INSULIN GLARGINE
     Indication: Type 2 diabetes mellitus
     Dosage: 60 IU, QD
  4. LANTUS [Suspect]
     Active Substance: INSULIN GLARGINE
     Dosage: 54 IU, QD
  5. FOLIC ACID\INOSITOL [Suspect]
     Active Substance: FOLIC ACID\INOSITOL
     Indication: Polycystic ovarian syndrome
     Dosage: UNK (QD)
  6. INOSITOL [Suspect]
     Active Substance: INOSITOL
     Indication: Product used for unknown indication
     Dosage: UNK

REACTIONS (4)
  - Amniorrhexis [Unknown]
  - Premature rupture of membranes [Recovered/Resolved]
  - Abortion induced [Unknown]
  - Exposure during pregnancy [Unknown]
